FAERS Safety Report 5166160-2 (Version None)
Quarter: 2006Q4

REPORT INFORMATION
  Report Type: 
  Country: None (occurrence: None)
  Receive Date: 20061129
  Receipt Date: 20061117
  Transmission Date: 20070319
  Serious: Yes (Hospitalization, Other)
  Sender: FDA-Public Use
  Company Number: 2006143816

PATIENT
  Age: 53 Year
  Sex: Female
  Weight: 77.1115 kg

DRUGS (3)
  1. LIPITOR [Suspect]
     Indication: BLOOD CHOLESTEROL INCREASED
     Dosage: 20 MG (20 MG, 1 IN 1 D)
     Dates: start: 20040101
  2. LISINOPRIL [Concomitant]
  3. LEXAPRO [Concomitant]

REACTIONS (14)
  - ABASIA [None]
  - ARTHRALGIA [None]
  - BONE DISORDER [None]
  - CATARACT [None]
  - FIBROMYALGIA [None]
  - FUNGAL RASH [None]
  - HAEMORRHOIDS [None]
  - MOVEMENT DISORDER [None]
  - MUSCULAR WEAKNESS [None]
  - OSTEOARTHRITIS [None]
  - PAIN IN EXTREMITY [None]
  - POST CONCUSSION SYNDROME [None]
  - RHEUMATOID ARTHRITIS [None]
  - TOE DEFORMITY [None]
